FAERS Safety Report 16360578 (Version 1)
Quarter: 2019Q2

REPORT INFORMATION
  Report Type: Report from Study
  Country: IT (occurrence: IT)
  Receive Date: 20190528
  Receipt Date: 20190528
  Transmission Date: 20190711
  Serious: Yes (Other)
  Sender: FDA-Public Use
  Company Number: IT-AUROBINDO-AUR-APL-2019-029095

PATIENT

DRUGS (14)
  1. CARBOPLATIN CONCENTRATE FOR SOLUTION FOR INFUSION [Suspect]
     Active Substance: CARBOPLATIN
     Dosage: 250 MG/M2 DAILY; ALTERNATING BLOCKS ADMINISTERED IN A 1H IV INFUSION ON DAYS 1 AND 2 (WHEN GIVEN WIT
     Route: 041
  2. ETOPOSIDE. [Suspect]
     Active Substance: ETOPOSIDE
     Dosage: 100 MG/M2 DAILY; ALTERNATING BLOCKS ADMINISTERED IN 1H IV INFUSION ON DAYS 1, 2 AND 3; TOTAL DOSE 30
     Route: 041
  3. DOXORUBICIN [Suspect]
     Active Substance: DOXORUBICIN
     Indication: RHABDOMYOSARCOMA
     Dosage: UNK
     Route: 065
  4. ETOPOSIDE. [Suspect]
     Active Substance: ETOPOSIDE
     Indication: RHABDOMYOSARCOMA RECURRENT
     Dosage: 100 MILLIGRAM/SQ. METER, DAILY, 1H (ON DAYS 1,2 AND 3 (TOTAL DOSE 300 MG/M2)
     Route: 042
  5. CYCLOPHOSPHAMIDE. [Suspect]
     Active Substance: CYCLOPHOSPHAMIDE
     Indication: RHABDOMYOSARCOMA RECURRENT
     Dosage: 1500 MILLIGRAM/SQ. METER, DAILY, 4H (ON DAYS 1 AND 2 (TOTAL DOSE 3000 MG/M2)
     Route: 042
  6. CYCLOPHOSPHAMIDE. [Suspect]
     Active Substance: CYCLOPHOSPHAMIDE
     Dosage: 1500 MG/M2 DAILY; ALTERNATING BLOCKS ADMINISTERED IN 4H IV INFUSION ON DAYS 1 AND 2; TOTAL DOSE 3000
     Route: 041
  7. DACTINOMYCIN [Suspect]
     Active Substance: DACTINOMYCIN
     Indication: RHABDOMYOSARCOMA
     Dosage: UNK
     Route: 065
  8. DOXORUBICIN [Suspect]
     Active Substance: DOXORUBICIN
     Dosage: 360 MILLIGRAM/SQ. METER
     Route: 065
  9. TOPOTECAN [Suspect]
     Active Substance: TOPOTECAN HYDROCHLORIDE
     Indication: RHABDOMYOSARCOMA RECURRENT
     Dosage: 2 MILLIGRAM/SQ. METER, DAILY, 30 MINUTES (ON DAYS 1, 2 AND 3 (TOTAL DOSE 6 MG/M2 PER COURSE))
     Route: 042
  10. TOPOTECAN [Suspect]
     Active Substance: TOPOTECAN HYDROCHLORIDE
     Dosage: 2 MG/M2 DAILY; TWO BLOCKS ADMINISTERED VIA 30-MINUTE IV INFUION ON DAYS 1, 2 AND 3; TOTAL DOSE 6MG/M
     Route: 041
  11. CARBOPLATIN CONCENTRATE FOR SOLUTION FOR INFUSION [Suspect]
     Active Substance: CARBOPLATIN
     Indication: RHABDOMYOSARCOMA RECURRENT
     Dosage: 250 MILLIGRAM/SQ. METER, DAILY, 1H (ON DAYS 4 AND 5 (WHEN GIVEN WITH TOPOTECAN)
     Route: 042
  12. IFOSFAMIDE. [Suspect]
     Active Substance: IFOSFAMIDE
     Indication: RHABDOMYOSARCOMA
     Dosage: UNK
     Route: 065
  13. VINCRISTINE [Suspect]
     Active Substance: VINCRISTINE
     Indication: RHABDOMYOSARCOMA
     Dosage: UNK
     Route: 065
  14. CARBOPLATIN CONCENTRATE FOR SOLUTION FOR INFUSION [Suspect]
     Active Substance: CARBOPLATIN
     Dosage: 250 MG/M2 DAILY; TWO BLOCKS ADMINISTERED IN A 1H IV INFUSION ON DAYS4 AND 5 (WHEN GIVEN WITH TOPOTEC
     Route: 041

REACTIONS (7)
  - Toxicity to various agents [Unknown]
  - Cardiac dysfunction [Unknown]
  - Renal tubular disorder [Recovered/Resolved]
  - Blood creatinine increased [Unknown]
  - Proteinuria [Recovered/Resolved]
  - Nephropathy toxic [Unknown]
  - Mucosal inflammation [Unknown]
